FAERS Safety Report 18074384 (Version 3)
Quarter: 2020Q4

REPORT INFORMATION
  Report Type: Spontaneous
  Country: US (occurrence: US)
  Receive Date: 20200727
  Receipt Date: 20201117
  Transmission Date: 20210113
  Serious: No
  Sender: FDA-Public Use
  Company Number: US-PFIZER INC-2020282524

PATIENT
  Age: 63 Year
  Sex: Male
  Weight: 129.27 kg

DRUGS (5)
  1. DILANTIN [Suspect]
     Active Substance: PHENYTOIN
     Dosage: 30 MG, 2X/DAY
  2. DILANTIN [Suspect]
     Active Substance: PHENYTOIN
     Indication: GENERALISED TONIC-CLONIC SEIZURE
     Dosage: 400 MG, DAILY (FOUR 100 MG CAPSULES A DAY)
  3. DILANTIN [Suspect]
     Active Substance: PHENYTOIN
     Dosage: 300 MG, DAILY (100 MG; ONE IN THE MORNING AND TWO CAPSULES AT NIGHT)
  4. DILANTIN [Suspect]
     Active Substance: PHENYTOIN
     Dosage: 500 MG, DAILY (100 MG; 2 IN THE MORNING AND 3 AT NIGHT)
  5. PRIMIDONE. [Concomitant]
     Active Substance: PRIMIDONE
     Indication: GENERALISED TONIC-CLONIC SEIZURE
     Dosage: UNK, 2X/DAY (250 MG; ONE IN THE MORNING, 1.5 IN THE EVENING)

REACTIONS (3)
  - Drug level abnormal [Recovered/Resolved]
  - Metabolic disorder [Unknown]
  - Fall [Unknown]

NARRATIVE: CASE EVENT DATE: 2016
